FAERS Safety Report 9274773 (Version 7)
Quarter: 2013Q4

REPORT INFORMATION
  Report Type: Spontaneous
  Country: US (occurrence: US)
  Receive Date: 20130507
  Receipt Date: 20131230
  Transmission Date: 20140711
  Serious: Yes (Congenital Anomaly, Other)
  Sender: FDA-Public Use
  Company Number: US-JNJFOC-20130417571

PATIENT
  Sex: Male

DRUGS (14)
  1. TOPAMAX [Suspect]
     Indication: FOETAL EXPOSURE DURING PREGNANCY
     Route: 064
  2. TOPAMAX [Suspect]
     Indication: FOETAL EXPOSURE DURING PREGNANCY
     Route: 064
  3. TOPAMAX [Suspect]
     Indication: FOETAL EXPOSURE DURING PREGNANCY
     Route: 064
  4. PHENOBARBITAL [Suspect]
     Indication: FOETAL EXPOSURE DURING PREGNANCY
     Route: 064
  5. DEPAKOTE [Suspect]
     Indication: FOETAL EXPOSURE DURING PREGNANCY
     Route: 064
  6. NEURONTIN [Suspect]
     Indication: CONVULSION PROPHYLAXIS
     Route: 065
  7. LEXAPRO [Suspect]
     Indication: FOETAL EXPOSURE DURING PREGNANCY
     Route: 064
  8. LORAZEPAM [Suspect]
     Indication: FOETAL EXPOSURE DURING PREGNANCY
     Route: 064
  9. PROMETHAZINE [Suspect]
     Indication: FOETAL EXPOSURE DURING PREGNANCY
     Route: 064
  10. NITROFURANTOIN [Suspect]
     Indication: FOETAL EXPOSURE DURING PREGNANCY
     Route: 064
  11. CEFACLOR [Suspect]
     Indication: FOETAL EXPOSURE DURING PREGNANCY
     Route: 064
  12. FLUCONAZOLE [Suspect]
     Indication: FOETAL EXPOSURE DURING PREGNANCY
     Route: 064
  13. FLUOXETINE [Suspect]
     Indication: FOETAL EXPOSURE DURING PREGNANCY
     Route: 064
  14. VITAMIN B2 [Concomitant]
     Route: 064

REACTIONS (23)
  - Developmental delay [Recovering/Resolving]
  - Cleft lip [Recovering/Resolving]
  - Spina bifida [Unknown]
  - Jaundice neonatal [Unknown]
  - Pilonidal cyst [Unknown]
  - Otitis media acute [Unknown]
  - Dental caries [Unknown]
  - Cleft palate [Unknown]
  - Umbilical hernia [Unknown]
  - Maternal drugs affecting foetus [None]
  - Caesarean section [None]
  - Adhesion [None]
  - Dacryostenosis acquired [None]
  - Dysphagia [None]
  - Cough [None]
  - Choking [None]
  - Snoring [None]
  - Somnambulism [None]
  - Sleep terror [None]
  - Sleep apnoea syndrome [None]
  - Nasal disorder [None]
  - Psychomotor hyperactivity [None]
  - Sensory disturbance [None]
